FAERS Safety Report 7374893-2 (Version None)
Quarter: 2011Q1

REPORT INFORMATION
  Report Type: 
  Country: None (occurrence: None)
  Receive Date: 20110325
  Receipt Date: 20110228
  Transmission Date: 20110831
  Serious: No
  Sender: FDA-Public Use
  Company Number: US-B.I. PHARMACEUTICALS,INC./RIDGEFIELD-2011-BP-05673BP

PATIENT
  Sex: Female

DRUGS (9)
  1. LEVOTHYROXINE SODIUM [Concomitant]
     Indication: HYPOTHYROIDISM
     Dosage: 0.125 MG
  2. SOTALOL HCL [Concomitant]
     Dosage: 80 MG
  3. PRADAXA [Suspect]
     Indication: ATRIAL FIBRILLATION
     Dosage: 300 MG
     Route: 048
     Dates: start: 20110219, end: 20110226
  4. NORVASC [Concomitant]
     Indication: HYPERTENSION
     Dosage: 10 MG
  5. EVISTA [Concomitant]
     Indication: OESTROGEN DEFICIENCY
     Dosage: 60 MG
  6. EXELON [Concomitant]
     Indication: MEMORY IMPAIRMENT
  7. DIGOXIN [Concomitant]
     Indication: ATRIAL FIBRILLATION
     Dosage: 0.125 MG
  8. AVAPRO [Concomitant]
     Indication: HYPERTENSION
     Dosage: 300 MG
  9. ARICEPT [Concomitant]
     Indication: MEMORY IMPAIRMENT
     Dosage: 10 MG

REACTIONS (3)
  - THROAT IRRITATION [None]
  - VOMITING [None]
  - DIARRHOEA [None]
